FAERS Safety Report 23858542 (Version 1)
Quarter: 2024Q2

REPORT INFORMATION
  Report Type: Spontaneous
  Country: US (occurrence: None)
  Receive Date: 20240514
  Receipt Date: 20240514
  Transmission Date: 20240716
  Serious: Yes (Hospitalization, Disabling)
  Sender: FDA-Public Use
  Company Number: None

PATIENT
  Age: 68 Year
  Sex: Female
  Weight: 100 kg

DRUGS (3)
  1. WARFARIN [Suspect]
     Active Substance: WARFARIN
     Indication: Atrial fibrillation
     Dosage: FREQUENCY : DAILY;?
     Route: 048
     Dates: start: 20221114, end: 20240222
  2. WARFARIN [Suspect]
     Active Substance: WARFARIN
     Indication: Deep vein thrombosis
  3. WARFARIN [Suspect]
     Active Substance: WARFARIN
     Indication: Pulmonary embolism

REACTIONS (2)
  - Cerebral haemorrhage [None]
  - Subarachnoid haemorrhage [None]

NARRATIVE: CASE EVENT DATE: 20240222
